FAERS Safety Report 24140593 (Version 3)
Quarter: 2024Q3

REPORT INFORMATION
  Report Type: Spontaneous
  Country: ES (occurrence: ES)
  Receive Date: 20240726
  Receipt Date: 20240927
  Transmission Date: 20241017
  Serious: Yes (Hospitalization)
  Sender: UCB
  Company Number: None

PATIENT
  Age: 26 Year
  Sex: Male

DRUGS (12)
  1. LACOSAMIDE [Interacting]
     Active Substance: LACOSAMIDE
     Indication: Product used for unknown indication
     Dosage: 150 MILLIGRAM, 2X/DAY (BID)
     Dates: start: 20240603
  2. LACOSAMIDE [Interacting]
     Active Substance: LACOSAMIDE
     Dosage: 100 MILLIGRAM, 2X/DAY (BID)
  3. LACOSAMIDE [Interacting]
     Active Substance: LACOSAMIDE
     Dosage: 50 MILLIGRAM, 2X/DAY (BID)
  4. LACOSAMIDE [Interacting]
     Active Substance: LACOSAMIDE
     Dosage: 100 MILLIGRAM, 2X/DAY (BID) (100-0-100 MG))
     Dates: start: 20240724
  5. CENOBAMATE [Interacting]
     Active Substance: CENOBAMATE
     Indication: Epilepsy
     Dosage: 50 MILLIGRAM, ONCE DAILY (QD)
     Route: 048
     Dates: start: 20240603
  6. CENOBAMATE [Interacting]
     Active Substance: CENOBAMATE
     Route: 048
  7. CLOBAZAM [Interacting]
     Active Substance: CLOBAZAM
     Indication: Product used for unknown indication
     Dosage: FU1: 10-0-15. AFTER 5 DAYS HE WAS ADVISED TO REDUCE TO 5-0-15 AND THEN TO 0-0-15MG. IF DROWSINESS PE
  8. CLOBAZAM [Interacting]
     Active Substance: CLOBAZAM
     Dosage: FU1: 10-0-15. AFTER 5 DAYS HE WAS ADVISED TO REDUCE TO 5-0-15 AND THEN TO 0-0-15MG. IF DROWSINESS PE
  9. CANNABIDIOL [Concomitant]
     Active Substance: CANNABIDIOL
     Indication: Product used for unknown indication
     Dosage: 5.5-0-5.5
  10. CANNABIDIOL [Concomitant]
     Active Substance: CANNABIDIOL
     Dosage: 5.5-0-5.5
  11. BRIVIACT [Concomitant]
     Active Substance: BRIVARACETAM
     Indication: Product used for unknown indication
     Dosage: 300-0-300
  12. VALPROIC ACID [Concomitant]
     Active Substance: VALPROIC ACID
     Indication: Product used for unknown indication
     Dosage: 300-0-300

REACTIONS (6)
  - Status epilepticus [Recovered/Resolved]
  - Change in seizure presentation [Unknown]
  - Somnolence [Unknown]
  - Drug interaction [Not Recovered/Not Resolved]
  - Decreased appetite [Not Recovered/Not Resolved]
  - Off label use [Unknown]

NARRATIVE: CASE EVENT DATE: 20240603
